FAERS Safety Report 16431455 (Version 3)
Quarter: 2019Q3

REPORT INFORMATION
  Report Type: Spontaneous
  Country: US (occurrence: US)
  Receive Date: 20190614
  Receipt Date: 20190807
  Transmission Date: 20191004
  Serious: No
  Sender: FDA-Public Use
  Company Number: US-PFIZER INC-2019254996

PATIENT
  Age: 72 Year
  Sex: Female

DRUGS (3)
  1. DIFLUCAN [Suspect]
     Active Substance: FLUCONAZOLE
     Indication: GLOSSITIS
     Dosage: 200 MG, UNK
  2. DIFLUCAN [Suspect]
     Active Substance: FLUCONAZOLE
     Indication: DRY MOUTH
  3. DIFLUCAN [Suspect]
     Active Substance: FLUCONAZOLE
     Indication: STOMATITIS

REACTIONS (3)
  - Drug ineffective [Unknown]
  - Off label use [Unknown]
  - Product use in unapproved indication [Unknown]
